FAERS Safety Report 5246202-6 (Version None)
Quarter: 2007Q1

REPORT INFORMATION
  Report Type: 
  Country: None (occurrence: None)
  Receive Date: 20070220
  Receipt Date: 20070209
  Transmission Date: 20070707
  Serious: Yes (Death)
  Sender: FDA-Public Use
  Company Number: 2007JP000515

PATIENT
  Age: 72 Year
  Sex: Female

DRUGS (2)
  1. PROGRAF [Suspect]
     Indication: RHEUMATOID ARTHRITIS
     Dosage: ORAL
     Route: 048
     Dates: end: 20061227
  2. PREDNISOLONE [Concomitant]

REACTIONS (2)
  - CARDIAC FAILURE ACUTE [None]
  - VIRAL INFECTION [None]
